FAERS Safety Report 7558472-X (Version None)
Quarter: 2011Q2

REPORT INFORMATION
  Report Type: 
  Country: None (occurrence: None)
  Receive Date: 20110620
  Receipt Date: 20110613
  Transmission Date: 20111010
  Serious: Yes (Other)
  Sender: FDA-Public Use
  Company Number: US-ALLERGAN-1108052US

PATIENT
  Age: 76 Year
  Sex: Female

DRUGS (5)
  1. SINEMET [Concomitant]
     Indication: TORTICOLLIS
  2. BOTULINUM TOXIN TYPE A [Suspect]
     Indication: TORTICOLLIS
     Dosage: UNK
     Route: 030
     Dates: start: 20110101, end: 20110101
  3. DIOVAN [Concomitant]
     Indication: PRODUCT USED FOR UNKNOWN INDICATION
  4. ZOCOR [Concomitant]
     Indication: PRODUCT USED FOR UNKNOWN INDICATION
  5. ZEBETA [Concomitant]
     Indication: PRODUCT USED FOR UNKNOWN INDICATION

REACTIONS (3)
  - OESOPHAGEAL FOOD IMPACTION [None]
  - OESOPHAGEAL DISORDER [None]
  - CHOKING [None]
